FAERS Safety Report 9210371 (Version 1)
Quarter: 2013Q2

REPORT INFORMATION
  Report Type: Spontaneous
  Country: SE (occurrence: SE)
  Receive Date: 20130404
  Receipt Date: 20130404
  Transmission Date: 20140414
  Serious: Yes (Hospitalization, Disabling)
  Sender: FDA-Public Use
  Company Number: SE-ASTRAZENECA-2013SE20164

PATIENT
  Age: 48 Year
  Sex: Male

DRUGS (3)
  1. SEROQUEL DEPOT [Suspect]
     Route: 048
     Dates: start: 200901
  2. FLUANXOL [Concomitant]
     Dosage: 20 MG/ML
  3. ERGENYL [Concomitant]

REACTIONS (16)
  - Disturbance in attention [Not Recovered/Not Resolved]
  - Hyperhidrosis [Not Recovered/Not Resolved]
  - Urinary incontinence [Not Recovered/Not Resolved]
  - Psychiatric symptom [Not Recovered/Not Resolved]
  - Decreased interest [Not Recovered/Not Resolved]
  - Loss of libido [Not Recovered/Not Resolved]
  - Amnesia [Not Recovered/Not Resolved]
  - Oedema [Not Recovered/Not Resolved]
  - Aptyalism [Not Recovered/Not Resolved]
  - Dysuria [Not Recovered/Not Resolved]
  - Visual impairment [Not Recovered/Not Resolved]
  - Mental status changes [Not Recovered/Not Resolved]
  - General physical health deterioration [Not Recovered/Not Resolved]
  - Dry mouth [Not Recovered/Not Resolved]
  - Fatigue [Not Recovered/Not Resolved]
  - Weight increased [Not Recovered/Not Resolved]
